FAERS Safety Report 14085059 (Version 1)
Quarter: 2017Q4

REPORT INFORMATION
  Report Type: Report from Study
  Country: US (occurrence: US)
  Receive Date: 20171013
  Receipt Date: 20171013
  Transmission Date: 20180321
  Serious: Yes (Other)
  Sender: FDA-Public Use
  Company Number: US-ROCHE-2005663

PATIENT

DRUGS (2)
  1. TRIAMCINOLONE [Suspect]
     Active Substance: TRIAMCINOLONE
     Indication: RETINAL VEIN OCCLUSION
     Dosage: 2 MG FOR A TOTAL OF 0.1 ML
     Route: 050
  2. BEVACIZUMAB. [Suspect]
     Active Substance: BEVACIZUMAB
     Indication: RETINAL VEIN OCCLUSION
     Dosage: DOSE: 1.25 MG (0.05 ML)
     Route: 050

REACTIONS (5)
  - Intraocular pressure increased [Unknown]
  - Visual acuity reduced [Unknown]
  - Off label use [Unknown]
  - Iris neovascularisation [Unknown]
  - Product use issue [Unknown]
